FAERS Safety Report 19772661 (Version 1)
Quarter: 2021Q3

REPORT INFORMATION
  Report Type: Spontaneous
  Country: US (occurrence: US)
  Receive Date: 20210901
  Receipt Date: 20210901
  Transmission Date: 20211014
  Serious: Yes (Life-Threatening, Hospitalization)
  Sender: FDA-Public Use
  Company Number: None

PATIENT
  Age: 72 Year
  Sex: Male
  Weight: 100.8 kg

DRUGS (13)
  1. ATORVASTATIN [Concomitant]
     Active Substance: ATORVASTATIN
  2. CYCLOSPORINE 0.05% DROPS [Concomitant]
  3. DOXEPIN [Concomitant]
     Active Substance: DOXEPIN
  4. ENALAPRIL?HYDROCHLOROTHIAZIDE [Concomitant]
     Active Substance: ENALAPRIL\HYDROCHLOROTHIAZIDE
  5. FLUTICASONE FUROATE?VILANTEROL [Concomitant]
  6. REGEN?COV [Suspect]
     Active Substance: CASIRIVIMAB\IMDEVIMAB
     Indication: SARS-COV-2 TEST POSITIVE
     Dosage: ?          OTHER FREQUENCY:ONCE;?
     Route: 042
     Dates: start: 20210814, end: 20210814
  7. VIT A, C, E, ZINC, COPPER [Concomitant]
  8. BEVACIZUMAB. [Concomitant]
     Active Substance: BEVACIZUMAB
  9. TRAZODONE [Concomitant]
     Active Substance: TRAZODONE HYDROCHLORIDE
  10. VERAPAMIL [Concomitant]
     Active Substance: VERAPAMIL HYDROCHLORIDE
  11. POTASSIUM CHLORIDE. [Concomitant]
     Active Substance: POTASSIUM CHLORIDE
  12. CYANOCOBALAMIN. [Concomitant]
     Active Substance: CYANOCOBALAMIN
  13. DOCOSAHEXAENOIC ACIS/EPA [Concomitant]

REACTIONS (9)
  - Wheezing [None]
  - Paraesthesia [None]
  - Dyspnoea [None]
  - Condition aggravated [None]
  - Miller Fisher syndrome [None]
  - Cough [None]
  - Muscular weakness [None]
  - Guillain-Barre syndrome [None]
  - Bickerstaff^s encephalitis [None]

NARRATIVE: CASE EVENT DATE: 20210822
